FAERS Safety Report 6028629-8 (Version None)
Quarter: 2009Q1

REPORT INFORMATION
  Report Type: 
  Country: None (occurrence: None)
  Receive Date: 20090106
  Receipt Date: 20081203
  Transmission Date: 20090719
  Serious: Yes (Other)
  Sender: FDA-Public Use
  Company Number: DE-AVENTIS-200811852DE

PATIENT
  Age: 16 Year
  Sex: Female

DRUGS (2)
  1. URBASON [Suspect]
     Indication: RHEUMATOID ARTHRITIS
     Route: 048
     Dates: start: 20050501
  2. ARAVA [Suspect]
     Indication: RHEUMATOID ARTHRITIS
     Route: 048
     Dates: start: 20050501

REACTIONS (8)
  - BODY HEIGHT ABNORMAL [None]
  - DRUG INEFFECTIVE [None]
  - IMPAIRED HEALING [None]
  - OSTEOPOROSIS [None]
  - PITUITARY-DEPENDENT CUSHING'S SYNDROME [None]
  - RASH [None]
  - RHEUMATOID ARTHRITIS [None]
  - WEIGHT INCREASED [None]
